FAERS Safety Report 11134184 (Version 1)
Quarter: 2015Q2

REPORT INFORMATION
  Report Type: Spontaneous
  Country: US (occurrence: US)
  Receive Date: 20150524
  Receipt Date: 20150524
  Transmission Date: 20150821
  Serious: No
  Sender: FDA-Public Use
  Company Number: US-JNJFOC-20140505797

PATIENT
  Age: 76 Year
  Sex: Male
  Weight: 112.49 kg

DRUGS (3)
  1. INVOKANA [Suspect]
     Active Substance: CANAGLIFLOZIN
     Indication: TYPE 2 DIABETES MELLITUS
     Route: 048
     Dates: start: 20140507, end: 20140513
  2. SULFONYLUREA AGENT [Concomitant]
     Active Substance: UNSPECIFIED INGREDIENT
     Indication: PRODUCT USED FOR UNKNOWN INDICATION
  3. METFORMIN [Concomitant]
     Active Substance: METFORMIN HYDROCHLORIDE
     Dates: start: 20120110

REACTIONS (2)
  - Blood glucose increased [Unknown]
  - Balanitis candida [Recovered/Resolved]

NARRATIVE: CASE EVENT DATE: 20140507
